FAERS Safety Report 19263834 (Version 2)
Quarter: 2021Q2

REPORT INFORMATION
  Report Type: Spontaneous
  Country: FR (occurrence: FR)
  Receive Date: 20210517
  Receipt Date: 20210531
  Transmission Date: 20210717
  Serious: Yes (Hospitalization, Other)
  Sender: FDA-Public Use
  Company Number: NVSC2021FR069006

PATIENT
  Age: 61 Year
  Sex: Male
  Weight: 78 kg

DRUGS (14)
  1. OXALIPLATIN. [Suspect]
     Active Substance: OXALIPLATIN
     Dosage: 205 MG
     Route: 041
     Dates: start: 20210218
  2. PARACETAMOL [Concomitant]
     Active Substance: ACETAMINOPHEN
     Indication: PAIN
     Dosage: 6 G, QD
     Route: 065
     Dates: start: 20210225, end: 20210302
  3. ATEZOLIZUMAB. [Suspect]
     Active Substance: ATEZOLIZUMAB
     Indication: COLORECTAL CANCER METASTATIC
     Dosage: 1200 MG (DATE OF LAST DOSE ADMINISTERED : 18 FEB 2021)
     Route: 041
     Dates: start: 20201214
  4. BEVACIZUMAB. [Suspect]
     Active Substance: BEVACIZUMAB
     Indication: COLORECTAL CANCER METASTATIC
     Dosage: 587 MG (DATE OF LAST DOSE ADMINISTRERED: 18 FEB 2021)
     Route: 041
     Dates: start: 20210218
  5. OXALIPLATIN. [Suspect]
     Active Substance: OXALIPLATIN
     Dosage: 205 MG
     Route: 041
     Dates: start: 20210413
  6. ATEZOLIZUMAB. [Suspect]
     Active Substance: ATEZOLIZUMAB
     Dosage: 1200 MG (MOST RECENT DOSE PRIOR TO EVENT FEVER ON 13/APR/2021)
     Route: 041
     Dates: start: 20210218
  7. METFORMIN [Concomitant]
     Active Substance: METFORMIN HYDROCHLORIDE
     Indication: TYPE 2 DIABETES MELLITUS
     Dosage: 100 MG
     Route: 065
  8. OXALIPLATIN. [Suspect]
     Active Substance: OXALIPLATIN
     Indication: COLORECTAL CANCER METASTATIC
     Dosage: 225 MG (DATE OF LAST DOSE OF OXALIPLATIN: 18 FEB 2021)
     Route: 041
     Dates: start: 20201214
  9. CAPECITABINE. [Suspect]
     Active Substance: CAPECITABINE
     Indication: COLORECTAL CANCER METASTATIC
     Dosage: 5200 MG (DATE OF LAST DOSE OF CAPECITABINE: 18/FEB/2021)
     Route: 048
     Dates: start: 20201214
  10. BEVACIZUMAB. [Suspect]
     Active Substance: BEVACIZUMAB
     Dosage: 537 MG (DATE OF LAST DOSE ADMINISTRERED: 18/FEB/2021 ON 13/APR/2021, RECEIVED MOST RECENT DOSE PRIOR
     Route: 041
     Dates: start: 20210218
  11. KARDEGIC [Concomitant]
     Active Substance: ASPIRIN DL-LYSINE
     Indication: PRODUCT USED FOR UNKNOWN INDICATION
     Dosage: 75 MG
     Route: 065
  12. YTTRIUM (90 Y) [Suspect]
     Active Substance: YTTRIUM CHLORIDE Y-90
     Indication: COLORECTAL CANCER METASTATIC
     Dosage: DATE OF LAST DOSE (689,3MGY) OF YTTRIUM (90 Y): 28/JAN/2021
     Route: 065
     Dates: start: 20210128
  13. PARACETAMOL [Concomitant]
     Active Substance: ACETAMINOPHEN
     Dosage: 6 G, QD
     Route: 065
     Dates: start: 20210301, end: 20210303
  14. COVERAM [Concomitant]
     Active Substance: AMLODIPINE\PERINDOPRIL
     Indication: HYPERTENSION
     Dosage: 10 MG
     Route: 065

REACTIONS (3)
  - Pyrexia [Recovering/Resolving]
  - Abdominal pain [Recovered/Resolved]
  - Cholangitis [Recovered/Resolved]

NARRATIVE: CASE EVENT DATE: 20210305
